FAERS Safety Report 18529184 (Version 4)
Quarter: 2021Q1

REPORT INFORMATION
  Report Type: Spontaneous
  Country: US (occurrence: US)
  Receive Date: 20201120
  Receipt Date: 20210111
  Transmission Date: 20210419
  Serious: Yes (Death)
  Sender: FDA-Public Use
  Company Number: US-CELGENEUS-USA-20201105104

PATIENT
  Sex: Male

DRUGS (10)
  1. THALOMID [Suspect]
     Active Substance: THALIDOMIDE
     Dosage: 150 MILLIGRAM
     Route: 048
     Dates: start: 202004, end: 20201116
  2. THALOMID [Suspect]
     Active Substance: THALIDOMIDE
     Indication: ARTERIOVENOUS MALFORMATION
     Dosage: 100 MILLIGRAM
     Route: 048
     Dates: start: 201403
  3. THALOMID [Suspect]
     Active Substance: THALIDOMIDE
     Dosage: 50?100MG
     Route: 048
     Dates: start: 201506
  4. THALOMID [Suspect]
     Active Substance: THALIDOMIDE
     Dosage: 100 ? 50 MILLIGRAM
     Route: 048
     Dates: start: 201706
  5. THALOMID [Suspect]
     Active Substance: THALIDOMIDE
     Dosage: 50?100MG
     Route: 048
     Dates: start: 201802
  6. THALOMID [Suspect]
     Active Substance: THALIDOMIDE
     Indication: OFF LABEL USE
     Dosage: 50 MILLIGRAM
     Route: 048
     Dates: start: 201404
  7. THALOMID [Suspect]
     Active Substance: THALIDOMIDE
     Dosage: 100 MILLIGRAM
     Route: 048
     Dates: start: 201503
  8. THALOMID [Suspect]
     Active Substance: THALIDOMIDE
     Dosage: 100 MILLIGRAM
     Route: 048
     Dates: start: 201507
  9. THALOMID [Suspect]
     Active Substance: THALIDOMIDE
     Dosage: 200?100MG
     Route: 048
     Dates: start: 201701
  10. THALOMID [Suspect]
     Active Substance: THALIDOMIDE
     Dosage: 100 MILLIGRAM
     Route: 048
     Dates: start: 201902

REACTIONS (2)
  - Hypertrophic cardiomyopathy [Fatal]
  - Cardiac failure [Fatal]
